FAERS Safety Report 6815204-8 (Version None)
Quarter: 2010Q2

REPORT INFORMATION
  Report Type: 
  Country: None (occurrence: None)
  Receive Date: 20100630
  Receipt Date: 20100630
  Transmission Date: 20101027
  Serious: Yes (Hospitalization)
  Sender: FDA-Public Use
  Company Number: None

PATIENT
  Sex: Female
  Weight: 151.7 kg

DRUGS (2)
  1. CISPLATIN [Suspect]
     Dosage: 100 MG
     Dates: end: 20100608
  2. TAXOL [Suspect]
     Dosage: 350 MG
     Dates: end: 20100608

REACTIONS (3)
  - CELLULITIS [None]
  - NEUTROPHIL COUNT DECREASED [None]
  - NEUTROPHIL COUNT INCREASED [None]
